FAERS Safety Report 9167914 (Version 1)
Quarter: 2013Q1

REPORT INFORMATION
  Report Type: Spontaneous
  Country: GB (occurrence: None)
  Receive Date: 20130305
  Receipt Date: 20130305
  Transmission Date: 20140127
  Serious: Yes (Other)
  Sender: FDA-Public Use
  Company Number: AUR-APL-2013-01689

PATIENT
  Age: 42 Year
  Sex: Male
  Weight: 56 kg

DRUGS (6)
  1. RIBAVIRIN [Suspect]
     Indication: HEPATITIS C
     Dates: start: 20120920, end: 20130116
  2. INCIVO [Suspect]
     Indication: HEPATITIS C
     Route: 048
     Dates: start: 20120920, end: 20130116
  3. CITALOPRAM (CITALOPRAM) [Concomitant]
  4. PEGYLATED INTERFERON NOS (PEGINTERFERON ALFA-2A) [Concomitant]
  5. RITONAVIR (RITONAVIR) [Concomitant]
  6. TRUVADA (TENOFOVIR DISOPROXIL FUMARATE) [Concomitant]

REACTIONS (4)
  - Anaemia [None]
  - Syncope [None]
  - Haemorrhage [None]
  - Drug ineffective [None]
